FAERS Safety Report 16515688 (Version 2)
Quarter: 2019Q3

REPORT INFORMATION
  Report Type: Spontaneous
  Country: US (occurrence: US)
  Receive Date: 20190702
  Receipt Date: 20190729
  Transmission Date: 20191004
  Serious: No
  Sender: FDA-Public Use
  Company Number: US-009507513-1907USA000360

PATIENT
  Age: 25 Year
  Sex: Female
  Weight: 107.03 kg

DRUGS (1)
  1. NEXPLANON [Suspect]
     Active Substance: ETONOGESTREL
     Indication: CONTRACEPTION
     Dosage: 1 DOSAGE FORM
     Route: 023
     Dates: start: 20150611, end: 20190615

REACTIONS (5)
  - Incorrect route of product administration [Unknown]
  - Implant site pain [Recovered/Resolved]
  - Incorrect product administration duration [Unknown]
  - Device difficult to use [Recovered/Resolved]
  - Pain [Recovered/Resolved]

NARRATIVE: CASE EVENT DATE: 20150611
